FAERS Safety Report 5316441-4 (Version None)
Quarter: 2007Q2

REPORT INFORMATION
  Report Type: 
  Country: None (occurrence: None)
  Receive Date: 20070504
  Receipt Date: 20070423
  Transmission Date: 20071010
  Serious: Yes (Hospitalization, Other)
  Sender: FDA-Public Use
  Company Number: PHEH2007US05656

PATIENT
  Age: 52 Year
  Sex: Female
  Weight: 73.922 kg

DRUGS (8)
  1. ZELNORM [Suspect]
     Indication: BOWEL MOVEMENT IRREGULARITY
     Dosage: 6 MG, BID
     Route: 048
     Dates: start: 20031001, end: 20070413
  2. NEXIUM [Concomitant]
     Dosage: 40 MG, UNK
  3. REGLAN [Concomitant]
     Dosage: 5 MG, UNK
     Route: 048
  4. XANAX - SLOW RELEASE [Concomitant]
     Indication: ANXIETY
     Dosage: 1 MG, UNK
     Route: 048
  5. ISOSORBIDE DINITRATE [Concomitant]
     Dosage: 30 MG, UNK
     Route: 048
  6. ALBUTEROL [Concomitant]
     Dosage: UNK, TID
  7. OXYGEN [Concomitant]
     Indication: CHRONIC OBSTRUCTIVE PULMONARY DISEASE
     Dosage: 3 LITERS
  8. ASPIRIN [Concomitant]
     Dosage: 81 MG, UNK
     Route: 048

REACTIONS (11)
  - BALANCE DISORDER [None]
  - BOWEL MOVEMENT IRREGULARITY [None]
  - CHEST PAIN [None]
  - CORONARY ARTERIAL STENT INSERTION [None]
  - CORONARY ARTERY OCCLUSION [None]
  - DIZZINESS [None]
  - GAIT DISTURBANCE [None]
  - HEADACHE [None]
  - PRODUCTIVE COUGH [None]
  - PULMONARY OEDEMA [None]
  - VOMITING [None]
